FAERS Safety Report 9242533 (Version 1)
Quarter: 2013Q2

REPORT INFORMATION
  Report Type: Spontaneous
  Country: US (occurrence: US)
  Receive Date: 20130419
  Receipt Date: 20130419
  Transmission Date: 20140414
  Serious: No
  Sender: FDA-Public Use
  Company Number: US-B.I. PHARMACEUTICALS,INC./RIDGEFIELD-2013-BI-09934BP

PATIENT
  Age: 67 Year
  Sex: Female
  Weight: 81 kg

DRUGS (2)
  1. SPIRIVA [Suspect]
     Indication: ASTHMA
     Dosage: 18 MCG
     Route: 055
     Dates: start: 201301
  2. DULERA [Concomitant]
     Indication: ASTHMA
     Route: 055
     Dates: start: 201301

REACTIONS (3)
  - Tremor [Not Recovered/Not Resolved]
  - Feeling jittery [Not Recovered/Not Resolved]
  - Vision blurred [Not Recovered/Not Resolved]
